FAERS Safety Report 9884434 (Version 2)
Quarter: 2014Q1

REPORT INFORMATION
  Report Type: Not Available
  Country: IE (occurrence: IE)
  Receive Date: 20140210
  Receipt Date: 20140304
  Transmission Date: 20141002
  Serious: Yes (Hospitalization, Other)
  Sender: FDA-Public Use
  Company Number: IE-ASTELLAS-2014EU000912

PATIENT
  Age: 77 Year
  Sex: Female

DRUGS (9)
  1. BETMIGA [Suspect]
     Indication: URINARY INCONTINENCE
     Dosage: 50 MG, UID/QD
     Route: 048
     Dates: start: 20131206, end: 20140122
  2. MONOTRIM [Concomitant]
     Indication: PROPHYLAXIS URINARY TRACT INFECTION
     Dosage: 100 MG, UID/QD
     Route: 065
     Dates: start: 20131231, end: 20140124
  3. PROTHIADEN [Concomitant]
     Indication: DEPRESSION
     Dosage: 100 MG, UID/QD
     Route: 065
     Dates: start: 20121119, end: 20140124
  4. CALTRATE                           /00944201/ [Concomitant]
     Indication: VITAMIN D DEFICIENCY
     Dosage: UNK
     Route: 065
     Dates: start: 20131209, end: 20140124
  5. CALTRATE                           /00944201/ [Concomitant]
     Indication: CALCIUM DEFICIENCY
  6. PROTELOS [Concomitant]
     Indication: OSTEOPOROSIS
     Dosage: 1 DF, UID/QD
     Route: 065
     Dates: start: 20130319, end: 20140124
  7. NAPROSYN                           /00256201/ [Concomitant]
     Indication: MUSCULOSKELETAL PAIN
     Dosage: 500 MG, BID
     Route: 065
     Dates: start: 20130319, end: 20140124
  8. NU-SEALS [Concomitant]
     Indication: ANTIPLATELET THERAPY
     Dosage: 75 MG, UID/QD
     Route: 065
     Dates: start: 20130319, end: 20140124
  9. QUININE SULPHATE [Concomitant]
     Indication: MUSCLE SPASMS
     Dosage: 300 MG, UID/QD
     Route: 065
     Dates: start: 20131209, end: 20140124

REACTIONS (3)
  - Dyspnoea [Recovered/Resolved]
  - Tachycardia [Recovered/Resolved]
  - Fatigue [Recovered/Resolved]
